FAERS Safety Report 6537189-4 (Version None)
Quarter: 2010Q1

REPORT INFORMATION
  Report Type: 
  Country: None (occurrence: None)
  Receive Date: 20100114
  Receipt Date: 20091214
  Transmission Date: 20100710
  Serious: No
  Sender: FDA-Public Use
  Company Number: US-BAYER-200942851NA

PATIENT
  Sex: Female
  Weight: 118 kg

DRUGS (1)
  1. BILTRICIDE [Suspect]
     Indication: PROPHYLAXIS
     Dosage: TOTAL DAILY DOSE: 1800 MG

REACTIONS (1)
  - NO ADVERSE EVENT [None]
